FAERS Safety Report 15349848 (Version 1)
Quarter: 2018Q3

REPORT INFORMATION
  Report Type: Spontaneous
  Country: US (occurrence: US)
  Receive Date: 20180829
  Receipt Date: 20180829
  Transmission Date: 20181010
  Serious: No
  Sender: FDA-Public Use
  Company Number: None

PATIENT
  Age: 39 Year
  Sex: Female

DRUGS (2)
  1. HARVONI [Concomitant]
     Active Substance: LEDIPASVIR\SOFOSBUVIR
  2. RIBAVIRIN CAP [Suspect]
     Active Substance: RIBAVIRIN
     Dates: start: 20180731

REACTIONS (3)
  - Asthenia [None]
  - Nausea [None]
  - Fatigue [None]

NARRATIVE: CASE EVENT DATE: 20180731
